FAERS Safety Report 4877208-4 (Version None)
Quarter: 2005Q4

REPORT INFORMATION
  Report Type: 
  Country: None (occurrence: None)
  Receive Date: 20051206
  Receipt Date: 20050930
  Transmission Date: 20060501
  Serious: No
  Sender: FDA-Public Use
  Company Number: USA0509109311

PATIENT
  Age: 64 Year
  Sex: Male

DRUGS (2)
  1. CYMBALTA [Suspect]
     Indication: PAIN IN EXTREMITY
     Dosage: 60 MG DAY
     Dates: start: 20050816, end: 20050906
  2. ASPIRIN [Concomitant]

REACTIONS (7)
  - BONE PAIN [None]
  - INSOMNIA [None]
  - LOSS OF LIBIDO [None]
  - MUSCLE SPASMS [None]
  - MYALGIA [None]
  - PARAESTHESIA [None]
  - POLLAKIURIA [None]
